FAERS Safety Report 6194168-7 (Version None)
Quarter: 2009Q2

REPORT INFORMATION
  Report Type: 
  Country: None (occurrence: None)
  Receive Date: 20090518
  Receipt Date: 20090506
  Transmission Date: 20091009
  Serious: Yes (Hospitalization)
  Sender: FDA-Public Use
  Company Number: TR-GENENTECH-282935

PATIENT
  Age: 47 Year
  Sex: Male

DRUGS (9)
  1. ACTIVASE [Suspect]
     Indication: INTRACARDIAC THROMBUS
     Dosage: 25 MG, UNK
     Route: 042
  2. ACTIVASE [Suspect]
     Dosage: 25 MG, UNK
     Route: 042
  3. ACTIVASE [Suspect]
     Dosage: 25 MG, UNK
     Route: 042
  4. ACTIVASE [Suspect]
     Dosage: 5 MG, UNK
     Route: 042
  5. EPINEPHRINE [Concomitant]
     Indication: BLOOD PRESSURE
     Dosage: 0.3 A?GKGMN, CONTINUOUS
     Route: 042
  6. DOPAMINE HCL [Concomitant]
     Indication: BLOOD PRESSURE
     Dosage: 10 A?GKGMN, CONTINUOUS
     Route: 042
  7. DIAZEPAM [Concomitant]
     Indication: SEDATION
     Dosage: UNK
  8. PANCURONIUM [Concomitant]
     Indication: DRUG USE FOR UNKNOWN INDICATION
     Dosage: UNK
  9. PROTON PUMP INHIBITORS [Concomitant]
     Indication: PROPHYLAXIS
     Dosage: UNK
     Route: 042

REACTIONS (3)
  - CEREBROVASCULAR ACCIDENT [None]
  - EMBOLISM [None]
  - LOSS OF CONSCIOUSNESS [None]
